FAERS Safety Report 17413950 (Version 1)
Quarter: 2020Q1

REPORT INFORMATION
  Report Type: Spontaneous
  Country: US (occurrence: US)
  Receive Date: 20200213
  Receipt Date: 20200213
  Transmission Date: 20200409
  Serious: No
  Sender: FDA-Public Use
  Company Number: US-JNJFOC-20200217136

PATIENT

DRUGS (1)
  1. REMICADE [Suspect]
     Active Substance: INFLIXIMAB
     Indication: RHEUMATOID ARTHRITIS
     Route: 042

REACTIONS (6)
  - Joint swelling [Unknown]
  - Gastric disorder [Unknown]
  - Oral discomfort [Unknown]
  - Asthenia [Unknown]
  - Eye disorder [Unknown]
  - Dizziness [Unknown]
